FAERS Safety Report 7721799-2 (Version None)
Quarter: 2011Q3

REPORT INFORMATION
  Report Type: 
  Country: None (occurrence: None)
  Receive Date: 20110831
  Receipt Date: 20110823
  Transmission Date: 20111222
  Serious: Yes (Other)
  Sender: FDA-Public Use
  Company Number: US-US-EMD SERONO, INC.-7079108

PATIENT
  Sex: Female

DRUGS (2)
  1. PLAQUENIL [Concomitant]
  2. REBIF [Suspect]
     Indication: MULTIPLE SCLEROSIS
     Route: 058
     Dates: start: 20080829, end: 20110201

REACTIONS (1)
  - SYSTEMIC LUPUS ERYTHEMATOSUS [None]
